FAERS Safety Report 12238671 (Version 1)
Quarter: 2016Q2

REPORT INFORMATION
  Report Type: Spontaneous
  Country: US (occurrence: US)
  Receive Date: 20160405
  Receipt Date: 20160405
  Transmission Date: 20160815
  Serious: No
  Sender: FDA-Public Use
  Company Number: US-TEVA-600539USA

PATIENT
  Sex: Male
  Weight: 77.18 kg

DRUGS (1)
  1. WARFARIN [Suspect]
     Active Substance: WARFARIN
     Route: 065
     Dates: start: 2011

REACTIONS (1)
  - Hypoaesthesia [Unknown]
